FAERS Safety Report 15571234 (Version 1)
Quarter: 2018Q4

REPORT INFORMATION
  Report Type: Report from Study
  Country: AR (occurrence: AR)
  Receive Date: 20181031
  Receipt Date: 20181031
  Transmission Date: 20190205
  Serious: Yes (Death, Hospitalization)
  Sender: FDA-Public Use
  Company Number: AR-ACTELION-A-CH2018-181192

PATIENT
  Age: 48 Year
  Sex: Female
  Weight: 115 kg

DRUGS (1)
  1. VELETRI [Suspect]
     Active Substance: EPOPROSTENOL
     Indication: PULMONARY ARTERIAL HYPERTENSION
     Dosage: 1.5 MG
     Route: 042
     Dates: start: 201806, end: 201810

REACTIONS (1)
  - Fluid retention [Fatal]

NARRATIVE: CASE EVENT DATE: 20181024
